FAERS Safety Report 9663869 (Version 1)
Quarter: 2013Q4

REPORT INFORMATION
  Report Type: Spontaneous
  Country: SE (occurrence: SE)
  Receive Date: 20131101
  Receipt Date: 20131101
  Transmission Date: 20140711
  Serious: Yes (Other)
  Sender: FDA-Public Use
  Company Number: SE-ASTELLAS-2013EU009330

PATIENT
  Age: 80 Year
  Sex: Female

DRUGS (2)
  1. BETMIGA [Suspect]
     Dosage: 2 DF, UNKNOWN/D
     Route: 065
  2. BETMIGA [Suspect]
     Dosage: 1 DF, UNKNOWN/D
     Route: 065

REACTIONS (2)
  - Dyspnoea [Recovered/Resolved]
  - Cardiac discomfort [Recovered/Resolved]
